FAERS Safety Report 4582209-X (Version None)
Quarter: 2005Q1

REPORT INFORMATION
  Report Type: 
  Country: None (occurrence: None)
  Receive Date: 20050214
  Receipt Date: 20050131
  Transmission Date: 20050727
  Serious: Yes (Other)
  Sender: FDA-Public Use
  Company Number: CHPA2003US02268

PATIENT
  Age: 58 Year
  Sex: Female
  Weight: 158.7 kg

DRUGS (32)
  1. EX-LAX (NCH) [Suspect]
     Dosage: ORAL
     Route: 048
     Dates: start: 19900101
  2. DULCOLAX [Suspect]
  3. FEEN-A-MINT(PHENOLPHTHALEIN) [Suspect]
     Dosage: ORAL
     Route: 048
     Dates: start: 19900101
  4. CORRECTOL [Suspect]
     Dosage: ORAL
     Route: 048
     Dates: start: 19900101
  5. INSULIN HUMULIN 70/30(INSULIN HUMAN, INSULIN HUMAN INJECTION, ISOPHANE [Concomitant]
  6. LORCET-HD [Concomitant]
  7. DARVOCET-N(DEXTROPROPOXYPHENE NAPSILATE, PARACETAMOL) [Concomitant]
  8. VALIUM [Concomitant]
  9. NOROXIN [Concomitant]
  10. ELAVIL [Concomitant]
  11. SURFAK (DOCUSATE CALCIUM) [Concomitant]
  12. SIMETHICONE (SIMETICONE) [Concomitant]
  13. METAMUCIL (ISPAHGULA, PLANTAGO OVATA) [Concomitant]
  14. MYCOSTANTIN (NYSTATIN) [Concomitant]
  15. PHENAZOPYRIDINE (PHENAZOPYRIDINE) [Concomitant]
  16. TRINSICON (ASCORBIC ACID, CYANOCOBALAMIN, CYANOCOBALAMIN WITH INTRINSI [Concomitant]
  17. ZESTRIL [Concomitant]
  18. MIDRIN (DICHLORALPHENAZONE, ISOMETHEPTENE, PARACETAMOL) [Concomitant]
  19. PROPOXYPHENE (DEXTROPROPOXYPHENE) [Concomitant]
  20. DIAZEPAM [Concomitant]
  21. LORTAB [Concomitant]
  22. XYLOCAINE [Concomitant]
  23. DEPO-MEDROL [Concomitant]
  24. VIOXX (ROFECOXIB0 [Concomitant]
  25. CELEBREX [Concomitant]
  26. DILANTIN /AUS/(PHENYTOIN SODIUM) [Concomitant]
  27. RELAFEN [Concomitant]
  28. NAPROSYN (NAPROXNE) [Concomitant]
  29. NAPRELAN ^ELAN^ (NAPROXEN SODIUM) [Concomitant]
  30. GLUCOPHAGE [Concomitant]
  31. LASIX [Concomitant]
  32. PLAVIX (CLOPIDOFREL SULFATE) [Concomitant]

REACTIONS (25)
  - ATELECTASIS [None]
  - BLOOD CHLORIDE DECREASED [None]
  - CHOLELITHIASIS [None]
  - COLONIC POLYP [None]
  - CONSTIPATION [None]
  - DIABETES MELLITUS [None]
  - DIVERTICULUM [None]
  - DRUG DEPENDENCE [None]
  - ECONOMIC PROBLEM [None]
  - EMOTIONAL DISORDER [None]
  - GASTRITIS [None]
  - GASTROINTESTINAL DISORDER [None]
  - GASTROINTESTINAL HAEMORRHAGE [None]
  - GRANULOCYTE COUNT INCREASED [None]
  - HAEMORRHOIDS [None]
  - HEPATIC STEATOSIS [None]
  - HYPERPLASIA [None]
  - INJURY [None]
  - INTESTINAL FUNCTIONAL DISORDER [None]
  - LAXATIVE ABUSE [None]
  - LYMPHOCYTE COUNT DECREASED [None]
  - MEAN PLATELET VOLUME DECREASED [None]
  - METAPLASIA [None]
  - PCO2 DECREASED [None]
  - RED CELL DISTRIBUTION WIDTH INCREASED [None]
